FAERS Safety Report 18293853 (Version 2)
Quarter: 2021Q2

REPORT INFORMATION
  Report Type: Other
  Country: US (occurrence: US)
  Receive Date: 20200921
  Receipt Date: 20210621
  Transmission Date: 20210717
  Serious: No
  Sender: FDA-Public Use
  Company Number: US-ACORDA-ACO_166171_2020

PATIENT
  Age: 80 Year
  Sex: Male

DRUGS (2)
  1. INBRIJA [Suspect]
     Active Substance: LEVODOPA
     Indication: PARKINSON^S DISEASE
  2. INBRIJA [Suspect]
     Active Substance: LEVODOPA
     Indication: ON AND OFF PHENOMENON
     Dosage: 84 MILLIGRAM, AS NEEDED (NOT TO EXCEED 5 DOSES PER DAY)

REACTIONS (6)
  - Drug ineffective [Unknown]
  - Headache [Unknown]
  - Product residue present [Unknown]
  - Pain [Unknown]
  - Pain in jaw [Unknown]
  - Device issue [Unknown]

NARRATIVE: CASE EVENT DATE: 20210401
